FAERS Safety Report 23875458 (Version 1)
Quarter: 2024Q2

REPORT INFORMATION
  Report Type: Spontaneous
  Country: CN (occurrence: None)
  Receive Date: 20240520
  Receipt Date: 20240520
  Transmission Date: 20240716
  Serious: Yes (Other)
  Sender: FDA-Public Use
  Company Number: 2024A114298

PATIENT
  Age: 73 Year
  Sex: Female
  Weight: 46 kg

DRUGS (2)
  1. DAPAGLIFLOZIN [Suspect]
     Active Substance: DAPAGLIFLOZIN
     Indication: Coronary artery disease
     Route: 048
     Dates: start: 20240429, end: 20240429
  2. SPIRONOLACTONE [Concomitant]
     Active Substance: SPIRONOLACTONE
     Indication: Hypertension
     Route: 048
     Dates: start: 20240429, end: 20240508

REACTIONS (4)
  - Anaphylactoid reaction [Recovered/Resolved]
  - Palpitations [Recovered/Resolved]
  - Hyperhidrosis [Recovered/Resolved]
  - Discomfort [Recovered/Resolved]

NARRATIVE: CASE EVENT DATE: 20240429
